FAERS Safety Report 11907256 (Version 1)
Quarter: 2016Q1

REPORT INFORMATION
  Report Type: Report from Study
  Country: US (occurrence: US)
  Receive Date: 20160111
  Receipt Date: 20160111
  Transmission Date: 20160526
  Serious: Yes (Other)
  Sender: FDA-Public Use
  Company Number: US-BAYER-2015-461917

PATIENT
  Age: 65 Year
  Sex: Male

DRUGS (2)
  1. STIVARGA [Suspect]
     Active Substance: REGORAFENIB
     Indication: COLORECTAL CANCER
     Dosage: 160 MG, OM
     Route: 048
     Dates: start: 20151027, end: 20151116
  2. STIVARGA [Suspect]
     Active Substance: REGORAFENIB
     Indication: COLORECTAL CANCER
     Dosage: 80 MG, QD
     Route: 048
     Dates: start: 20151216, end: 20151229

REACTIONS (18)
  - Arthralgia [None]
  - Fatigue [None]
  - Blood pressure increased [Not Recovered/Not Resolved]
  - Diarrhoea [None]
  - Amnesia [None]
  - Muscle spasms [None]
  - Constipation [Not Recovered/Not Resolved]
  - Rash macular [None]
  - Stomatitis [None]
  - Dysphonia [None]
  - Hepatic enzyme increased [None]
  - Pain [None]
  - Aphonia [None]
  - Rash [None]
  - Headache [None]
  - Dental caries [None]
  - Musculoskeletal pain [None]
  - Tooth extraction [None]

NARRATIVE: CASE EVENT DATE: 2015
